FAERS Safety Report 6459127-5 (Version None)
Quarter: 2009Q4

REPORT INFORMATION
  Report Type: 
  Country: None (occurrence: None)
  Receive Date: 20091127
  Receipt Date: 20091124
  Transmission Date: 20100525
  Serious: Yes (Other)
  Sender: FDA-Public Use
  Company Number: SE-BRISTOL-MYERS SQUIBB COMPANY-14198402

PATIENT
  Age: 57 Year
  Sex: Male

DRUGS (2)
  1. APROVEL FILM-COATED TABS [Suspect]
     Indication: HYPERTENSION
     Dosage: 5WEEKS IN TOTAL
     Route: 048
     Dates: start: 20080401, end: 20080505
  2. TIKACILLIN [Suspect]
     Indication: BACTERIAL INFECTION
     Dosage: 2DAYS IN TOTAL
     Route: 048
     Dates: start: 20080504, end: 20080505

REACTIONS (2)
  - ERYTHEMA MULTIFORME [None]
  - HAEMATURIA [None]
